FAERS Safety Report 16283981 (Version 1)
Quarter: 2019Q2

REPORT INFORMATION
  Report Type: Spontaneous
  Country: AU (occurrence: AU)
  Receive Date: 20190507
  Receipt Date: 20190507
  Transmission Date: 20190711
  Serious: Yes (Other)
  Sender: FDA-Public Use
  Company Number: AU-ALLERGAN-1918865US

PATIENT
  Sex: Male

DRUGS (2)
  1. OZURDEX [Suspect]
     Active Substance: DEXAMETHASONE
     Indication: CYSTOID MACULAR OEDEMA
     Dosage: 0.7 MG, SINGLE
     Route: 031
     Dates: start: 2018, end: 2018
  2. COMBIGAN [Suspect]
     Active Substance: BRIMONIDINE TARTRATE\TIMOLOL MALEATE
     Indication: CYSTOID MACULAR OEDEMA
     Route: 047

REACTIONS (5)
  - Visual acuity reduced [Recovering/Resolving]
  - Device dislocation [Unknown]
  - Intraocular pressure increased [Recovering/Resolving]
  - Corneal oedema [Unknown]
  - Off label use [Unknown]
